FAERS Safety Report 6665949-8 (Version None)
Quarter: 2010Q2

REPORT INFORMATION
  Report Type: 
  Country: None (occurrence: None)
  Receive Date: 20100402
  Receipt Date: 20100302
  Transmission Date: 20101027
  Serious: No
  Sender: FDA-Public Use
  Company Number: US-BAYER-201015750NA

PATIENT
  Age: 35 Year
  Sex: Female
  Weight: 68 kg

DRUGS (4)
  1. ULTRAVIST 370 [Suspect]
     Indication: ABDOMINAL PAIN LOWER
     Dosage: TOTAL DAILY DOSE: 80 ML  UNIT DOSE: 500 ML
     Route: 042
     Dates: start: 20100302, end: 20100302
  2. ZYRTEC [Concomitant]
  3. WELLBUTRIN [Concomitant]
  4. PROZAC [Concomitant]

REACTIONS (2)
  - PRURITUS [None]
  - URTICARIA [None]
